FAERS Safety Report 15667128 (Version 2)
Quarter: 2019Q2

REPORT INFORMATION
  Report Type: Spontaneous
  Country: US (occurrence: US)
  Receive Date: 20181128
  Receipt Date: 20190605
  Transmission Date: 20190711
  Serious: No
  Sender: FDA-Public Use
  Company Number: US-ROCHE-2189141

PATIENT
  Age: 46 Year
  Sex: Male
  Weight: 70.37 kg

DRUGS (4)
  1. OCREVUS [Suspect]
     Active Substance: OCRELIZUMAB
     Indication: SECONDARY PROGRESSIVE MULTIPLE SCLEROSIS
     Route: 042
     Dates: start: 2017
  2. DETROL [Concomitant]
     Active Substance: TOLTERODINE TARTRATE
     Dosage: DAILY; ONGOING: YES
     Route: 048
     Dates: start: 2002
  3. VITAMIN C [Concomitant]
     Active Substance: ASCORBIC ACID
     Dosage: DAILY; ONGOING: YES
     Route: 048
     Dates: start: 2001
  4. OCREVUS [Suspect]
     Active Substance: OCRELIZUMAB
     Route: 042
     Dates: start: 20180105, end: 20180105

REACTIONS (4)
  - Off label use [Unknown]
  - Intentional product use issue [Unknown]
  - Muscular weakness [Recovered/Resolved]
  - Balance disorder [Recovered/Resolved]

NARRATIVE: CASE EVENT DATE: 201807
